FAERS Safety Report 24855983 (Version 2)
Quarter: 2025Q1

REPORT INFORMATION
  Report Type: Spontaneous
  Country: BR (occurrence: BR)
  Receive Date: 20250117
  Receipt Date: 20250203
  Transmission Date: 20250409
  Serious: Yes (Other)
  Sender: Phathom Pharmaceuticals
  Company Number: BR-PHATHOM PHARMACEUTICALS INC.-2025PHT00054

PATIENT
  Age: 47 Year
  Sex: Female
  Weight: 78 kg

DRUGS (13)
  1. VONOPRAZAN FUMARATE [Suspect]
     Active Substance: VONOPRAZAN FUMARATE
     Indication: Oesophagitis
     Dosage: UNK, QD
     Route: 065
     Dates: start: 202311, end: 202411
  2. VONOPRAZAN FUMARATE [Suspect]
     Active Substance: VONOPRAZAN FUMARATE
     Indication: Palliative care
     Dosage: 20 MG, 1X/DAY
     Route: 065
     Dates: start: 202411
  3. PANTOPRAZOLE [Suspect]
     Active Substance: PANTOPRAZOLE
     Indication: Oesophagitis
     Route: 065
  4. LEVOTHYROXINE [Concomitant]
     Active Substance: LEVOTHYROXINE
  5. DOMPERIDONE [Concomitant]
     Active Substance: DOMPERIDONE
  6. MYCOPHENOLATE MOFETIL [Concomitant]
     Active Substance: MYCOPHENOLATE MOFETIL
  7. SERTRALINE [Concomitant]
     Active Substance: SERTRALINE HYDROCHLORIDE
  8. SILDENAFIL [Concomitant]
     Active Substance: SILDENAFIL
  9. VITAMIN D3 [Concomitant]
     Active Substance: CHOLECALCIFEROL
  10. LUFTAGASTROPRO [Concomitant]
  11. DIMETHICONE [Concomitant]
     Active Substance: DIMETHICONE
  12. KETOCONAZOLE [Concomitant]
     Active Substance: KETOCONAZOLE
  13. ESOMEPRAZOLE [Concomitant]
     Active Substance: ESOMEPRAZOLE
     Dates: start: 202410

REACTIONS (20)
  - Systemic scleroderma [Unknown]
  - Erosive oesophagitis [Unknown]
  - Chronic disease [Unknown]
  - Interstitial lung disease [Unknown]
  - Incorrect product administration duration [Unknown]
  - Off label use [Unknown]
  - Varicose vein [Unknown]
  - Pain [Unknown]
  - Raynaud^s phenomenon [Unknown]
  - Ulcer [Unknown]
  - Angioscopy [Unknown]
  - Skin hypertrophy [Unknown]
  - Malabsorption [Unknown]
  - Gastrointestinal microorganism overgrowth [Unknown]
  - Joint deformity [Unknown]
  - Condition aggravated [Unknown]
  - Gastrooesophageal reflux disease [Unknown]
  - Dyspnoea [Unknown]
  - Malaise [Unknown]
  - Arthralgia [Unknown]

NARRATIVE: CASE EVENT DATE: 20231101
